FAERS Safety Report 7853284-1 (Version None)
Quarter: 2011Q4

REPORT INFORMATION
  Report Type: 
  Country: None (occurrence: None)
  Receive Date: 20111026
  Receipt Date: 20111021
  Transmission Date: 20120403
  Serious: Yes (Death, Hospitalization)
  Sender: FDA-Public Use
  Company Number: US-AMGEN-USACT2011052628

PATIENT
  Age: 80 Year
  Sex: Female
  Weight: 57.596 kg

DRUGS (12)
  1. EYE DROPS [Concomitant]
     Dosage: UNK UNK, BID
     Dates: start: 20080101, end: 20111013
  2. NAMENDA [Concomitant]
     Indication: DEMENTIA
     Dosage: 10 MG, BID
     Dates: start: 20080101, end: 20111013
  3. CARBOPLATIN [Concomitant]
     Dosage: UNK
     Route: 042
     Dates: start: 20110907, end: 20110919
  4. SIMVASTATIN [Concomitant]
     Indication: HYPERCHOLESTEROLAEMIA
     Dosage: 20 MG, QD
     Dates: start: 20080101, end: 20111013
  5. PANITUMUMAB [Suspect]
     Indication: BREAST CANCER
     Dosage: 6 MG/M2, UNK
     Route: 042
     Dates: start: 20110907, end: 20110919
  6. ALLEGRA [Concomitant]
     Indication: HYPERSENSITIVITY
     Dosage: UNK UNK, PRN
     Dates: start: 20080101, end: 20111013
  7. MARINOL [Concomitant]
     Indication: DECREASED APPETITE
     Dosage: 5 MG, QHS
     Dates: start: 20110926, end: 20111013
  8. ASPIRIN [Concomitant]
     Indication: CARDIOVASCULAR EVENT PROPHYLAXIS
     Dosage: 81 MG, QD
     Dates: start: 20090101, end: 20111013
  9. CORTICOSTEROIDS [Concomitant]
  10. LISINOPRIL [Concomitant]
     Indication: HYPERTENSION
     Dosage: 20 MG, QD
     Dates: start: 20080101, end: 20111013
  11. GEMCITABINE [Concomitant]
     Dosage: 1500 MG, UNK
     Route: 042
     Dates: start: 20110907, end: 20110919
  12. CALTRATE D [Concomitant]
     Indication: MINERAL SUPPLEMENTATION
     Dosage: 600 MG, BID
     Dates: start: 20090101, end: 20111013

REACTIONS (3)
  - FAILURE TO THRIVE [None]
  - DECREASED APPETITE [None]
  - ASTHENIA [None]
